FAERS Safety Report 17191866 (Version 5)
Quarter: 2021Q1

REPORT INFORMATION
  Report Type: Spontaneous
  Country: DZ (occurrence: DZ)
  Receive Date: 20191223
  Receipt Date: 20210322
  Transmission Date: 20210419
  Serious: Yes (Life-Threatening, Hospitalization, Other)
  Sender: FDA-Public Use
  Company Number: DZ-BIOVITRUM-2019DZ4697

PATIENT
  Age: 8 Year
  Sex: Female

DRUGS (5)
  1. ORFADIN [Suspect]
     Active Substance: NITISINONE
     Indication: TYROSINAEMIA
  2. DUPHALAC [Concomitant]
     Active Substance: LACTULOSE
     Indication: PRODUCT USED FOR UNKNOWN INDICATION
  3. ORFADIN [Suspect]
     Active Substance: NITISINONE
  4. ORFADIN [Suspect]
     Active Substance: NITISINONE
  5. CALCIUM [Concomitant]
     Active Substance: CALCIUM
     Indication: PRODUCT USED FOR UNKNOWN INDICATION
     Dosage: MAINTENANCE DOSE

REACTIONS (10)
  - Haematemesis [Recovered/Resolved]
  - Hepatic failure [Unknown]
  - Hormone level abnormal [Unknown]
  - Hepatic encephalopathy [Unknown]
  - Prothrombin level decreased [Unknown]
  - Precocious puberty [Unknown]
  - Condition aggravated [Unknown]
  - Hair growth abnormal [Unknown]
  - Varices oesophageal [Unknown]
  - Portal hypertension [Unknown]

NARRATIVE: CASE EVENT DATE: 202001
